FAERS Safety Report 9214781 (Version 3)
Quarter: 2013Q4

REPORT INFORMATION
  Report Type: Report from Study
  Country: DE (occurrence: DE)
  Receive Date: 20130405
  Receipt Date: 20131204
  Transmission Date: 20140711
  Serious: Yes (Hospitalization)
  Sender: FDA-Public Use
  Company Number: DE-CELGENEUS-062-21660-13033954

PATIENT
  Age: 71 Year
  Sex: Female
  Weight: 80 kg

DRUGS (3)
  1. ABRAXANE [Suspect]
     Indication: BREAST CANCER
     Dosage: 187 MILLIGRAM
     Route: 041
     Dates: start: 20130215, end: 20130315
  2. ABRAXANE [Suspect]
     Dosage: 187 MILLIGRAM
     Route: 041
     Dates: start: 20130405
  3. CAPECITABINE [Suspect]
     Indication: BREAST CANCER
     Dosage: 4000 MILLIGRAM
     Route: 048
     Dates: start: 20130215, end: 20130315

REACTIONS (1)
  - Tachyarrhythmia [Recovered/Resolved]
